FAERS Safety Report 18564817 (Version 2)
Quarter: 2020Q4

REPORT INFORMATION
  Report Type: Spontaneous
  Country: US (occurrence: US)
  Receive Date: 20201201
  Receipt Date: 20201210
  Transmission Date: 20210114
  Serious: Yes (Hospitalization, Other)
  Sender: FDA-Public Use
  Company Number: US-PFIZER INC-2020468264

PATIENT
  Age: 72 Year
  Sex: Male

DRUGS (1)
  1. MEKTOVI [Suspect]
     Active Substance: BINIMETINIB
     Indication: MALIGNANT MELANOMA
     Dosage: 45 MG, 2X/DAY
     Dates: start: 20200806, end: 20201207

REACTIONS (3)
  - Second primary malignancy [Unknown]
  - Neoplasm progression [Unknown]
  - Brain neoplasm [Unknown]
